FAERS Safety Report 12766429 (Version 5)
Quarter: 2016Q4

REPORT INFORMATION
  Report Type: Report from Study
  Country: US (occurrence: US)
  Receive Date: 20160921
  Receipt Date: 20161125
  Transmission Date: 20170207
  Serious: No
  Sender: FDA-Public Use
  Company Number: PHEH2016US024130

PATIENT
  Sex: Female

DRUGS (2)
  1. AFINITOR [Suspect]
     Active Substance: EVEROLIMUS
     Indication: BREAST CANCER
     Dosage: 7.5 MG, QD
     Route: 048
     Dates: start: 20160908
  2. METFORMIN [Suspect]
     Active Substance: METFORMIN HYDROCHLORIDE
     Indication: PRODUCT USED FOR UNKNOWN INDICATION
     Route: 065

REACTIONS (6)
  - Reflux gastritis [Not Recovered/Not Resolved]
  - Hiccups [Not Recovered/Not Resolved]
  - Retching [Unknown]
  - Vomiting [Unknown]
  - Stomatitis [Unknown]
  - Blood glucose increased [Unknown]
